FAERS Safety Report 24351030 (Version 1)
Quarter: 2024Q3

REPORT INFORMATION
  Report Type: Report from Study
  Country: AT (occurrence: AT)
  Receive Date: 20240923
  Receipt Date: 20240923
  Transmission Date: 20241017
  Serious: No
  Sender: ROCHE
  Company Number: AT-ROCHE-2543814

PATIENT
  Age: 64 Year
  Sex: Female
  Weight: 80.4 kg

DRUGS (79)
  1. HERCEPTIN [Suspect]
     Active Substance: TRASTUZUMAB
     Indication: HER2 positive breast cancer
     Route: 042
     Dates: start: 20170224, end: 20170224
  2. HERCEPTIN [Suspect]
     Active Substance: TRASTUZUMAB
     Route: 042
     Dates: start: 20210317, end: 20210428
  3. HERCEPTIN [Suspect]
     Active Substance: TRASTUZUMAB
     Route: 042
     Dates: start: 20170317, end: 20170317
  4. HERCEPTIN [Suspect]
     Active Substance: TRASTUZUMAB
     Route: 042
     Dates: start: 20170519, end: 20170519
  5. HERCEPTIN [Suspect]
     Active Substance: TRASTUZUMAB
     Route: 042
     Dates: start: 20170410, end: 20170427
  6. HERCEPTIN [Suspect]
     Active Substance: TRASTUZUMAB
     Route: 042
     Dates: start: 20170609, end: 20170630
  7. HERCEPTIN [Suspect]
     Active Substance: TRASTUZUMAB
     Route: 042
     Dates: start: 20170810, end: 20190213
  8. HERCEPTIN [Suspect]
     Active Substance: TRASTUZUMAB
     Route: 042
     Dates: start: 20170720, end: 20170720
  9. HERCEPTIN [Suspect]
     Active Substance: TRASTUZUMAB
     Route: 042
     Dates: start: 20201230, end: 20210210
  10. HERCEPTIN [Suspect]
     Active Substance: TRASTUZUMAB
     Route: 042
     Dates: start: 20200422, end: 20200615
  11. PERJETA [Suspect]
     Active Substance: PERTUZUMAB
     Indication: HER2 positive breast cancer
     Route: 042
     Dates: start: 20170224, end: 20170224
  12. PERJETA [Suspect]
     Active Substance: PERTUZUMAB
     Dosage: FREQUENCY VARIED OVER TIME(FROM 3 WEEKS TO 24DAYS)
     Route: 042
     Dates: start: 20170317, end: 20190213
  13. PERJETA [Suspect]
     Active Substance: PERTUZUMAB
     Route: 042
     Dates: start: 20210317, end: 20210428
  14. PERJETA [Suspect]
     Active Substance: PERTUZUMAB
     Route: 042
     Dates: start: 20200422, end: 20200615
  15. KADCYLA [Suspect]
     Active Substance: ADO-TRASTUZUMAB EMTANSINE
     Indication: HER2 positive breast cancer
     Route: 042
     Dates: start: 20190306, end: 20190909
  16. TAXOTERE [Suspect]
     Active Substance: DOCETAXEL
     Indication: HER2 positive breast cancer
     Route: 042
     Dates: start: 20170224, end: 20170317
  17. TAXOTERE [Suspect]
     Active Substance: DOCETAXEL
     Route: 042
     Dates: start: 20170410, end: 20170427
  18. TAXOTERE [Suspect]
     Active Substance: DOCETAXEL
     Route: 042
     Dates: start: 20170519, end: 20170519
  19. TAXOTERE [Suspect]
     Active Substance: DOCETAXEL
     Route: 042
     Dates: start: 20170609, end: 20170630
  20. TAXOTERE [Suspect]
     Active Substance: DOCETAXEL
     Route: 042
     Dates: start: 20210317, end: 20210428
  21. FASLODEX [Suspect]
     Active Substance: FULVESTRANT
     Indication: HER2 positive breast cancer
     Route: 058
     Dates: start: 20171002, end: 20171115
  22. FASLODEX [Suspect]
     Active Substance: FULVESTRANT
     Route: 058
     Dates: start: 20171116, end: 20191001
  23. XGEVA [Concomitant]
     Active Substance: DENOSUMAB
     Dates: start: 20170202
  24. CALCIUM CARBONATE\CHOLECALCIFEROL [Concomitant]
     Active Substance: CALCIUM CARBONATE\CHOLECALCIFEROL
     Dates: start: 20170203
  25. EUTHYROX [Concomitant]
     Active Substance: LEVOTHYROXINE SODIUM
     Dates: start: 20170303
  26. CHOLECALCIFEROL [Concomitant]
     Active Substance: CHOLECALCIFEROL
     Dates: start: 20170329
  27. PREGABALIN [Concomitant]
     Active Substance: PREGABALIN
     Dates: start: 20180124, end: 20190820
  28. EDOXABAN TOSYLATE [Concomitant]
     Active Substance: EDOXABAN TOSYLATE
     Dates: start: 20181228, end: 20191015
  29. FUROSEMIDE [Concomitant]
     Active Substance: FUROSEMIDE
  30. PANTOPRAZOLE [Concomitant]
     Active Substance: PANTOPRAZOLE
  31. POLYETHYLENE GLYCOL 3350\POTASSIUM CHLORIDE\SODIUM BICARBONATE\SODIUM [Concomitant]
     Active Substance: POLYETHYLENE GLYCOL 3350\POTASSIUM CHLORIDE\SODIUM BICARBONATE\SODIUM CHLORIDE
  32. NOVALGIN (AUSTRIA) [Concomitant]
  33. LASIX [Concomitant]
     Active Substance: FUROSEMIDE
  34. KCL [Concomitant]
     Active Substance: POTASSIUM CHLORIDE
  35. ONDANSETRON HYDROCHLORIDE [Concomitant]
     Active Substance: ONDANSETRON HYDROCHLORIDE
  36. PARACODIN [Concomitant]
  37. TAZOBACTAM [Concomitant]
     Active Substance: TAZOBACTAM
  38. LOVENOX [Concomitant]
     Active Substance: ENOXAPARIN SODIUM
  39. FILGRASTIM [Concomitant]
     Active Substance: FILGRASTIM
  40. AUGMENTIN [Concomitant]
     Active Substance: AMOXICILLIN\CLAVULANATE POTASSIUM
  41. DEXAMETHASONE [Concomitant]
     Active Substance: DEXAMETHASONE
  42. XICLAV (AUSTRIA) [Concomitant]
  43. TRAZODONE HYDROCHLORIDE [Concomitant]
     Active Substance: TRAZODONE HYDROCHLORIDE
  44. OLIVE OIL [Concomitant]
     Active Substance: OLIVE OIL
  45. DIPRODERM (AUSTRIA) [Concomitant]
  46. ACTIMARIS [Concomitant]
  47. KALIORAL [Concomitant]
  48. EMEND [Concomitant]
     Active Substance: APREPITANT
  49. BETAISODONA [Concomitant]
     Active Substance: POVIDONE-IODINE
  50. NERIFORTE [Concomitant]
  51. LEUKICHTAN (AUSTRIA) [Concomitant]
  52. LEVOFLOXACIN [Concomitant]
     Active Substance: LEVOFLOXACIN
  53. ACETAMINOPHEN [Concomitant]
     Active Substance: ACETAMINOPHEN
  54. FENTANYL [Concomitant]
     Active Substance: FENTANYL\FENTANYL CITRATE
  55. ZOFRAN [Concomitant]
     Active Substance: ONDANSETRON HYDROCHLORIDE
  56. PASPERTIN [Concomitant]
  57. SILICON [Concomitant]
     Active Substance: SILICON
  58. AMOXICILLIN\CLAVULANATE POTASSIUM [Concomitant]
     Active Substance: AMOXICILLIN\CLAVULANATE POTASSIUM
  59. HYDROMORPHONE HYDROCHLORIDE [Concomitant]
     Active Substance: HYDROMORPHONE HYDROCHLORIDE
  60. CEFEPIME [Concomitant]
     Active Substance: CEFEPIME HYDROCHLORIDE
  61. DEXAMETHASONE [Concomitant]
     Active Substance: DEXAMETHASONE
  62. LIDOCAINE [Concomitant]
     Active Substance: LIDOCAINE
  63. CARBOXYMETHYLCELLULOSE SODIUM [Concomitant]
     Active Substance: CARBOXYMETHYLCELLULOSE SODIUM
  64. FILGRASTIM [Concomitant]
     Active Substance: FILGRASTIM
  65. MORPHINE [Concomitant]
     Active Substance: MORPHINE
  66. ZIEXTENZO [Concomitant]
     Active Substance: PEGFILGRASTIM-BMEZ
  67. AMPHOTERICIN B [Concomitant]
     Active Substance: AMPHOTERICIN B
  68. ALPRAZOLAM [Concomitant]
     Active Substance: ALPRAZOLAM
  69. TEMESTA [Concomitant]
  70. LACTULOSE [Concomitant]
     Active Substance: LACTULOSE
  71. VITAMIN C [Concomitant]
     Active Substance: ASCORBIC ACID
  72. HALSET [Concomitant]
  73. DROPERIDOL [Concomitant]
     Active Substance: DROPERIDOL
  74. SCOTTOPECT [Concomitant]
  75. PONVERIDOL [Concomitant]
  76. LORAZEPAM [Concomitant]
     Active Substance: LORAZEPAM
  77. BUTYLSCOPOLAMINE BROMIDE [Concomitant]
     Active Substance: BUTYLSCOPOLAMINE BROMIDE
  78. DRONABINOL [Concomitant]
     Active Substance: DRONABINOL
  79. HYALURONATE SODIUM [Concomitant]
     Active Substance: HYALURONATE SODIUM

REACTIONS (1)
  - Urinary tract infection [Recovered/Resolved]

NARRATIVE: CASE EVENT DATE: 20190601
